FAERS Safety Report 19725584 (Version 1)
Quarter: 2021Q3

REPORT INFORMATION
  Report Type: Spontaneous
  Country: US (occurrence: US)
  Receive Date: 20210819
  Receipt Date: 20210819
  Transmission Date: 20211014
  Serious: Yes (Other)
  Sender: FDA-Public Use
  Company Number: US-TEVA-2021-US-1941905

PATIENT
  Sex: Female

DRUGS (1)
  1. EPINEPHRINE. [Suspect]
     Active Substance: EPINEPHRINE
     Dosage: EPINEPHRINE INJECTION 0.3MG / 0.3 ML

REACTIONS (3)
  - Injection site indentation [Unknown]
  - Device malfunction [Unknown]
  - Drug dose omission by device [Unknown]
